FAERS Safety Report 21919487 (Version 1)
Quarter: 2023Q1

REPORT INFORMATION
  Report Type: Spontaneous
  Country: US (occurrence: None)
  Receive Date: 20230126
  Receipt Date: 20230126
  Transmission Date: 20230417
  Serious: No
  Sender: FDA-Public Use
  Company Number: None

PATIENT
  Age: 72 Year
  Sex: Male
  Weight: 75.6 kg

DRUGS (13)
  1. ICOSAPENT ETHYL [Suspect]
     Active Substance: ICOSAPENT ETHYL
     Indication: Lipids increased
     Dosage: FREQUENCY : TWICE A DAY;?
     Route: 048
     Dates: start: 20221214, end: 20230126
  2. Cardiac pacemaker [Concomitant]
  3. LOSARTAN [Concomitant]
     Active Substance: LOSARTAN
  4. DILTIAZEM [Concomitant]
     Active Substance: DILTIAZEM
  5. DULERA [Concomitant]
     Active Substance: FORMOTEROL FUMARATE DIHYDRATE\MOMETASONE FUROATE
  6. ALBUTEROL [Concomitant]
     Active Substance: ALBUTEROL
  7. Cd Q 10 [Concomitant]
  8. Pantelhine [Concomitant]
  9. VITAMINS [Concomitant]
     Active Substance: VITAMINS
  10. VITAMIN E [Concomitant]
     Active Substance: .ALPHA.-TOCOPHEROL
  11. L gluthiasone [Concomitant]
  12. BETA GLUCAN [Concomitant]
     Active Substance: BETA GLUCAN
  13. L lysine [Concomitant]

REACTIONS (8)
  - Oropharyngeal pain [None]
  - Epistaxis [None]
  - Pharyngeal swelling [None]
  - Ear disorder [None]
  - Dysphonia [None]
  - Blood cholesterol increased [None]
  - Low density lipoprotein increased [None]
  - Condition aggravated [None]

NARRATIVE: CASE EVENT DATE: 20230126
